FAERS Safety Report 23939676 (Version 1)
Quarter: 2024Q2

REPORT INFORMATION
  Report Type: Spontaneous
  Country: US (occurrence: US)
  Receive Date: 20240605
  Receipt Date: 20240605
  Transmission Date: 20240716
  Serious: No
  Sender: FDA-Public Use
  Company Number: US-OPELLA-2024OHG019061

PATIENT
  Sex: Male

DRUGS (1)
  1. ALLEGRA ALLERGY [Suspect]
     Active Substance: FEXOFENADINE HYDROCHLORIDE
     Indication: Rash pruritic

REACTIONS (11)
  - Stress [Unknown]
  - Restlessness [Unknown]
  - Dysuria [Unknown]
  - Dry mouth [Unknown]
  - Heart rate increased [Unknown]
  - Body temperature fluctuation [Unknown]
  - Hyperhidrosis [Unknown]
  - Feeling cold [Unknown]
  - Headache [Unknown]
  - Insomnia [Unknown]
  - Product use in unapproved indication [Unknown]
